FAERS Safety Report 23192937 (Version 7)
Quarter: 2024Q4

REPORT INFORMATION
  Report Type: Spontaneous
  Country: US (occurrence: US)
  Receive Date: 20231116
  Receipt Date: 20241119
  Transmission Date: 20250114
  Serious: Yes (Hospitalization, Other)
  Sender: SANOFI AVENTIS
  Company Number: US-SA-SAC20231111000437

PATIENT
  Age: 63 Year
  Sex: Female

DRUGS (3)
  1. DUPIXENT [Suspect]
     Active Substance: DUPILUMAB
     Indication: Dermatitis atopic
     Dosage: 300 MG, QOW
     Route: 058
     Dates: start: 202310
  2. DUPIXENT [Suspect]
     Active Substance: DUPILUMAB
     Indication: Eczema
  3. DUPIXENT [Suspect]
     Active Substance: DUPILUMAB
     Indication: Dermatitis

REACTIONS (10)
  - Myasthenia gravis [Unknown]
  - Hospitalisation [Unknown]
  - COVID-19 [Unknown]
  - Muscle spasms [Unknown]
  - Myalgia [Unknown]
  - Condition aggravated [Unknown]
  - Injection site pain [Unknown]
  - Eczema [Not Recovered/Not Resolved]
  - Product use in unapproved indication [Unknown]
  - Chest pain [Unknown]

NARRATIVE: CASE EVENT DATE: 20200101
